FAERS Safety Report 9820111 (Version 1)
Quarter: 2013Q4

REPORT INFORMATION
  Report Type: Spontaneous
  Country: GB (occurrence: None)
  Receive Date: 20131017
  Receipt Date: 20131017
  Transmission Date: 20140711
  Serious: Yes (Other)
  Sender: FDA-Public Use
  Company Number: 2012GMK004574

PATIENT
  Age: 51 Year
  Sex: Female
  Weight: 56 kg

DRUGS (8)
  1. GABAPENTIN [Suspect]
     Indication: PRODUCT USED FOR UNKNOWN INDICATION
     Dates: start: 20121001
  2. ATORVASTATIN [Concomitant]
  3. CITALOPRAM [Concomitant]
  4. CO-CODAMOL [Concomitant]
  5. CODEINE PHOSPHATE [Concomitant]
  6. LOSARTAN [Concomitant]
  7. ATENOLOL AND CHLORTHALIDONE [Concomitant]
  8. TERBINAFINE [Concomitant]

REACTIONS (2)
  - Skin exfoliation [None]
  - Rash [None]
